FAERS Safety Report 6055376-9 (Version None)
Quarter: 2009Q1

REPORT INFORMATION
  Report Type: 
  Country: None (occurrence: None)
  Receive Date: 20090128
  Receipt Date: 20090128
  Transmission Date: 20090719
  Serious: Yes (Hospitalization)
  Sender: FDA-Public Use
  Company Number: A0765419A

PATIENT
  Age: 24 Year
  Sex: Female

DRUGS (4)
  1. ALLI [Suspect]
     Route: 048
  2. PEPTO BISMOL [Concomitant]
  3. IBUPROFEN TABLETS [Concomitant]
  4. MULTI-VITAMIN [Concomitant]

REACTIONS (3)
  - FLANK PAIN [None]
  - NEPHROLITHIASIS [None]
  - VOMITING [None]
